FAERS Safety Report 9866414 (Version 7)
Quarter: 2023Q2

REPORT INFORMATION
  Report Type: Other
  Country: CA (occurrence: None)
  Receive Date: 20140204
  Receipt Date: 20230620
  Transmission Date: 20230721
  Serious: Yes (Other)
  Sender: FDA-Public Use
  Company Number: CA-ROCHE-1342096

PATIENT
  Age: 51 Year
  Sex: Female

DRUGS (23)
  1. RITUXAN [Suspect]
     Active Substance: RITUXIMAB
     Indication: Rheumatoid arthritis
     Dosage: LAST DOSE RECEIVED 22/AUG/2013 AND ON 12/DEC/2016
     Route: 042
     Dates: start: 20080609
  2. RITUXAN [Suspect]
     Active Substance: RITUXIMAB
     Route: 042
     Dates: start: 20100108, end: 20200318
  3. ACETAMINOPHEN [Concomitant]
     Active Substance: ACETAMINOPHEN
     Indication: Premedication
     Route: 048
     Dates: start: 20100108
  4. DIPHENHYDRAMINE HYDROCHLORIDE [Concomitant]
     Active Substance: DIPHENHYDRAMINE HYDROCHLORIDE
     Indication: Premedication
     Route: 048
     Dates: start: 20100108
  5. NORVASC [Concomitant]
     Active Substance: AMLODIPINE BESYLATE
  6. PERINDOPRIL [Concomitant]
     Active Substance: PERINDOPRIL
  7. PLAQUENIL [Concomitant]
     Active Substance: HYDROXYCHLOROQUINE SULFATE
  8. FERROUS GLUCONATE [Concomitant]
     Active Substance: FERROUS GLUCONATE
  9. VITAMIN C [Concomitant]
     Active Substance: ASCORBIC ACID
  10. LANSOPRAZOLE [Concomitant]
     Active Substance: LANSOPRAZOLE
  11. ONDANSETRON [Concomitant]
     Active Substance: ONDANSETRON
  12. ACTONEL [Concomitant]
     Active Substance: RISEDRONATE SODIUM
  13. BENADRYL [Concomitant]
     Active Substance: DIPHENHYDRAMINE HYDROCHLORIDE
     Indication: Premedication
     Route: 048
     Dates: start: 20100108
  14. DETROL [Concomitant]
     Active Substance: TOLTERODINE TARTRATE
     Route: 048
  15. KETOPROFEN [Concomitant]
     Active Substance: KETOPROFEN
     Route: 048
  16. PROLIA [Concomitant]
     Active Substance: DENOSUMAB
     Route: 065
  17. SOLU-MEDROL [Concomitant]
     Active Substance: METHYLPREDNISOLONE SODIUM SUCCINATE
     Indication: Premedication
     Route: 042
     Dates: start: 20100108
  18. TYLENOL [Concomitant]
     Active Substance: ACETAMINOPHEN
     Indication: Premedication
     Route: 048
     Dates: start: 20100108, end: 20130822
  19. TYLENOL [Concomitant]
     Active Substance: ACETAMINOPHEN
     Route: 048
     Dates: start: 20140314
  20. METHYLPREDNISOLONE [Concomitant]
     Active Substance: METHYLPREDNISOLONE
  21. PREDNISONE [Concomitant]
     Active Substance: PREDNISONE
     Route: 048
  22. METRONIDAZOLE [Concomitant]
     Active Substance: METRONIDAZOLE
  23. CALCIUM [Concomitant]
     Active Substance: CALCIUM
     Route: 048

REACTIONS (7)
  - Cystocele [Recovering/Resolving]
  - Clostridium difficile infection [Not Recovered/Not Resolved]
  - Urinary tract infection [Not Recovered/Not Resolved]
  - Uterine disorder [Recovering/Resolving]
  - Osteoporosis [Unknown]
  - Diarrhoea [Unknown]
  - Nausea [Unknown]

NARRATIVE: CASE EVENT DATE: 20131226
